FAERS Safety Report 8800300 (Version 2)
Quarter: 2015Q2

REPORT INFORMATION
  Report Type: Report from Study
  Country: US (occurrence: US)
  Receive Date: 20120921
  Receipt Date: 20150629
  Transmission Date: 20150821
  Serious: Yes (Death)
  Sender: FDA-Public Use
  Company Number: US-ROCHE-1123617

PATIENT
  Sex: Female
  Weight: 66.56 kg

DRUGS (11)
  1. AVASTIN [Suspect]
     Active Substance: BEVACIZUMAB
     Indication: MALIGNANT PERITONEAL NEOPLASM
     Route: 042
  2. DOXIL [Suspect]
     Active Substance: DOXORUBICIN HYDROCHLORIDE
     Indication: PRODUCT USED FOR UNKNOWN INDICATION
     Route: 065
  3. DECADRON [Concomitant]
     Active Substance: DEXAMETHASONE
     Route: 040
  4. IBUPROFEN. [Concomitant]
     Active Substance: IBUPROFEN
  5. AVASTIN [Suspect]
     Active Substance: BEVACIZUMAB
     Indication: OVARIAN CANCER
     Route: 042
     Dates: start: 20080922
  6. AVASTIN [Suspect]
     Active Substance: BEVACIZUMAB
     Indication: MALIGNANT NEOPLASM OF UTERINE ADNEXA
     Route: 042
  7. TAXOTERE [Concomitant]
     Active Substance: DOCETAXEL
  8. AMBIEN [Concomitant]
     Active Substance: ZOLPIDEM TARTRATE
  9. HEPARIN [Concomitant]
     Active Substance: HEPARIN SODIUM
     Route: 065
  10. VICODIN [Concomitant]
     Active Substance: ACETAMINOPHEN\HYDROCODONE BITARTRATE
  11. ALOXI [Concomitant]
     Active Substance: PALONOSETRON HYDROCHLORIDE
     Route: 065

REACTIONS (13)
  - Vaginal haemorrhage [Unknown]
  - Palmar-plantar erythrodysaesthesia syndrome [Unknown]
  - Off label use [Unknown]
  - Vaginal discharge [Unknown]
  - Alopecia [Unknown]
  - Traumatic haematoma [Unknown]
  - Vomiting [Unknown]
  - Kyphosis [Unknown]
  - Asthenia [Unknown]
  - Abdominal tenderness [Unknown]
  - Epistaxis [Unknown]
  - Death [Fatal]
  - Ascites [Unknown]
